FAERS Safety Report 8964392 (Version 1)
Quarter: 2012Q4

REPORT INFORMATION
  Report Type: 
  Country: US (occurrence: US)
  Receive Date: 20121214
  Receipt Date: 20121214
  Transmission Date: 20130627
  Serious: No
  Sender: FDA-Public Use
  Company Number: US-GLAXOSMITHKLINE-A0979844A

PATIENT
  Age: 82 Year
  Sex: Male

DRUGS (2)
  1. AVODART [Suspect]
     Indication: PRODUCT USED FOR UNKNOWN INDICATION
     Dosage: 1CAP Per day
     Route: 048
     Dates: end: 20120427
  2. BLOOD PRESSURE MEDICATION [Concomitant]

REACTIONS (1)
  - Prostatic specific antigen increased [Unknown]
